FAERS Safety Report 7945067-9 (Version None)
Quarter: 2011Q4

REPORT INFORMATION
  Report Type: 
  Country: None (occurrence: None)
  Receive Date: 20111129
  Receipt Date: 20111124
  Transmission Date: 20120403
  Serious: Yes (Hospitalization, Other)
  Sender: FDA-Public Use
  Company Number: CA-PFIZER INC-2011287721

PATIENT
  Age: 54 Year
  Sex: Male

DRUGS (2)
  1. VARENICLINE TARTRATE [Suspect]
     Indication: SMOKING CESSATION THERAPY
     Dosage: UNK
     Route: 048
     Dates: start: 20111031, end: 20110101
  2. VARENICLINE TARTRATE [Suspect]
     Dosage: 1 MG, 2X/DAY
     Route: 048
     Dates: start: 20110101, end: 20111113

REACTIONS (10)
  - RENAL FAILURE ACUTE [None]
  - HEPATIC FUNCTION ABNORMAL [None]
  - HYPOTENSION [None]
  - CARDIAC FAILURE CONGESTIVE [None]
  - ALCOHOL POISONING [None]
  - ABDOMINAL PAIN UPPER [None]
  - CHEST PAIN [None]
  - LOWER GASTROINTESTINAL HAEMORRHAGE [None]
  - HALLUCINATION [None]
  - DYSPNOEA [None]
